FAERS Safety Report 16529796 (Version 1)
Quarter: 2019Q3

REPORT INFORMATION
  Report Type: Other
  Country: GB (occurrence: GB)
  Receive Date: 20190704
  Receipt Date: 20190704
  Transmission Date: 20191004
  Serious: No
  Sender: FDA-Public Use
  Company Number: GB-LUPIN PHARMACEUTICALS INC.-2019-01983

PATIENT
  Age: 72 Year
  Sex: Female

DRUGS (1)
  1. SIMVASTATIN TABLETS [Suspect]
     Active Substance: SIMVASTATIN
     Indication: PRODUCT USED FOR UNKNOWN INDICATION
     Dosage: 20 MILLIGRAM, QID
     Route: 048
     Dates: start: 201901

REACTIONS (3)
  - Product dispensing error [Unknown]
  - Indifference [Unknown]
  - Feeling hot [Unknown]
